FAERS Safety Report 5822567-9 (Version None)
Quarter: 2008Q3

REPORT INFORMATION
  Report Type: 
  Country: None (occurrence: None)
  Receive Date: 20080725
  Receipt Date: 20080714
  Transmission Date: 20090109
  Serious: Yes (Other)
  Sender: FDA-Public Use
  Company Number: US-JNJFOC-20080703997

PATIENT
  Sex: Female
  Weight: 52.62 kg

DRUGS (4)
  1. FENTANYL TRANSDERMAL SYSTEM [Suspect]
     Indication: BACK PAIN
     Route: 062
  2. DURAGESIC-100 [Suspect]
     Indication: BACK PAIN
     Route: 062
  3. PERCOCET [Concomitant]
     Indication: BREAKTHROUGH PAIN
     Dosage: AS NEEDED
     Route: 048
  4. FIORINAL [Concomitant]
     Indication: MIGRAINE
     Route: 048

REACTIONS (3)
  - BLOOD PRESSURE INCREASED [None]
  - DRUG INEFFECTIVE [None]
  - MUSCLE SPASMS [None]
